FAERS Safety Report 10763396 (Version 1)
Quarter: 2015Q1

REPORT INFORMATION
  Report Type: Spontaneous
  Country: US (occurrence: US)
  Receive Date: 20150204
  Receipt Date: 20150204
  Transmission Date: 20150721
  Serious: Yes (Other)
  Sender: FDA-Public Use
  Company Number: US-PFIZER INC-2015041233

PATIENT
  Sex: Male

DRUGS (1)
  1. CHANTIX [Suspect]
     Active Substance: VARENICLINE TARTRATE
     Dosage: UNK

REACTIONS (5)
  - Confusional state [Unknown]
  - Agitation [Unknown]
  - Delirium [Unknown]
  - Mood altered [Unknown]
  - Aggression [Unknown]

NARRATIVE: CASE EVENT DATE: 201501
